FAERS Safety Report 5999153 (Version 3)
Quarter: 2012Q4

REPORT INFORMATION
  Report Type: 
  Country: DE (occurrence: DE)
  Receive Date: 20060307
  Receipt Date: 20121212
  Transmission Date: 20130627
  Serious: Yes (Other)
  Sender: FDA-Public Use
  Company Number: DE-GILEAD-2006-0009271

PATIENT
  Age: 52 Year
  Sex: Male

DRUGS (2)
  1. HEPSERA [Suspect]
     Indication: CHRONIC HEPATITIS B
  2. VIREAD [Suspect]
     Indication: CHRONIC HEPATITIS B

REACTIONS (1)
  - Viraemia [Recovered/Resolved]
